FAERS Safety Report 18315760 (Version 4)
Quarter: 2020Q4

REPORT INFORMATION
  Report Type: Spontaneous
  Country: US (occurrence: US)
  Receive Date: 20200926
  Receipt Date: 20201029
  Transmission Date: 20210113
  Serious: Yes (Hospitalization, Other)
  Sender: FDA-Public Use
  Company Number: NVSC2020US262280

PATIENT
  Sex: Female

DRUGS (6)
  1. TUCATINIB [Suspect]
     Active Substance: TUCATINIB
     Indication: BREAST CANCER FEMALE
     Dosage: UNK
     Route: 065
  2. CAPECITABINE. [Concomitant]
     Active Substance: CAPECITABINE
     Indication: PRODUCT USED FOR UNKNOWN INDICATION
     Dosage: UNK
     Route: 065
  3. HERCEPTIN [Concomitant]
     Active Substance: TRASTUZUMAB
     Indication: PRODUCT USED FOR UNKNOWN INDICATION
     Dosage: UNK
     Route: 065
  4. LAMISIL [Suspect]
     Active Substance: TERBINAFINE HYDROCHLORIDE
     Indication: PRODUCT USED FOR UNKNOWN INDICATION
     Dosage: UNK
     Route: 065
  5. FLUTICASONE PROPIONATE. [Interacting]
     Active Substance: FLUTICASONE PROPIONATE
     Indication: HYPERSENSITIVITY
     Dosage: UNK
     Route: 065
  6. BENADRYL [Suspect]
     Active Substance: DIPHENHYDRAMINE HYDROCHLORIDE
     Indication: PRODUCT USED FOR UNKNOWN INDICATION
     Dosage: UNK
     Route: 065

REACTIONS (26)
  - Diarrhoea [Unknown]
  - Product dose omission issue [Unknown]
  - Back pain [Unknown]
  - Onychomycosis [Unknown]
  - Condition aggravated [Unknown]
  - Memory impairment [Unknown]
  - Hypersensitivity [Unknown]
  - Movement disorder [Unknown]
  - Unevaluable event [Unknown]
  - Pain [Unknown]
  - Rhinorrhoea [Unknown]
  - Muscle spasms [Unknown]
  - Thirst [Unknown]
  - Diverticulitis [Unknown]
  - Chest discomfort [Unknown]
  - Pruritus [Unknown]
  - Muscle strain [Unknown]
  - Dry mouth [Unknown]
  - Headache [Unknown]
  - Drug interaction [Unknown]
  - Dry skin [Unknown]
  - Sneezing [Unknown]
  - Gastrooesophageal reflux disease [Unknown]
  - Nightmare [Unknown]
  - Ocular discomfort [Unknown]
  - Arthritis [Unknown]

NARRATIVE: CASE EVENT DATE: 20200908
